FAERS Safety Report 4494628-0 (Version None)
Quarter: 2004Q4

REPORT INFORMATION
  Report Type: 
  Country: None (occurrence: None)
  Receive Date: 20041103
  Receipt Date: 20041025
  Transmission Date: 20050328
  Serious: Yes (Death)
  Sender: FDA-Public Use
  Company Number: 2004GB02407

PATIENT
  Age: 43 Year
  Sex: Female

DRUGS (4)
  1. SEROQUEL [Suspect]
     Indication: PSYCHOTIC DISORDER
     Dosage: 700 MG DAILY PO
     Route: 048
     Dates: start: 20040817
  2. VALPROATE SODIUM [Suspect]
     Indication: EPILEPSY
  3. CARBAMAZEPINE [Concomitant]
  4. LEVETIRACETAM [Concomitant]

REACTIONS (3)
  - ELECTROCARDIOGRAM QT CORRECTED INTERVAL PROLONGED [None]
  - PULMONARY HAEMORRHAGE [None]
  - SUDDEN DEATH [None]
